FAERS Safety Report 23973211 (Version 1)
Quarter: 2024Q2

REPORT INFORMATION
  Report Type: Spontaneous
  Country: US (occurrence: US)
  Receive Date: 20240613
  Receipt Date: 20240613
  Transmission Date: 20240716
  Serious: No
  Sender: FDA-Public Use
  Company Number: US-PFIZER INC-202400192164

PATIENT
  Age: 57 Year
  Sex: Female

DRUGS (1)
  1. IBRANCE [Suspect]
     Active Substance: PALBOCICLIB
     Dosage: 1 CAPSULE (100MG) PO MONDAY THROUGH FRIDAY WITH FOOD FOR 3 WEEKS ON , FOLLOWED BY 1 WEEK OFF
     Route: 048

REACTIONS (1)
  - Fatigue [Unknown]
